FAERS Safety Report 6912369-4 (Version None)
Quarter: 2010Q3

REPORT INFORMATION
  Report Type: 
  Country: None (occurrence: None)
  Receive Date: 20100806
  Receipt Date: 20080530
  Transmission Date: 20110219
  Serious: No
  Sender: FDA-Public Use
  Company Number: US-PFIZER INC-2008011020

PATIENT
  Sex: Female

DRUGS (13)
  1. GLUCOTROL XL [Suspect]
     Indication: DIABETES MELLITUS
  2. NIASPAN [Suspect]
     Indication: BLOOD CHOLESTEROL INCREASED
     Dates: start: 20070701
  3. GLUCOPHAGE [Concomitant]
     Indication: DIABETES MELLITUS
  4. AVAPRO [Concomitant]
     Indication: HYPERTENSION
  5. DILTIAZEM [Concomitant]
  6. ALDACTONE [Concomitant]
  7. PRILOSEC [Concomitant]
  8. ACETYLSALICYLIC ACID SRT [Concomitant]
  9. WARFARIN SODIUM [Concomitant]
  10. VITAMIN E [Concomitant]
  11. SALMON OIL [Concomitant]
  12. LECITHIN [Concomitant]
  13. MULTI-VITAMINS [Concomitant]

REACTIONS (7)
  - BLOOD GLUCOSE FLUCTUATION [None]
  - CHEST PAIN [None]
  - HEADACHE [None]
  - HOT FLUSH [None]
  - MYALGIA [None]
  - NAUSEA [None]
  - PRODUCT QUALITY ISSUE [None]
